FAERS Safety Report 9991329 (Version 5)
Quarter: 2014Q4

REPORT INFORMATION
  Report Type: Spontaneous
  Country: US (occurrence: US)
  Receive Date: 20140310
  Receipt Date: 20141205
  Transmission Date: 20150529
  Serious: Yes (Hospitalization, Disabling, Other)
  Sender: FDA-Public Use
  Company Number: US-MERCK-1403USA004224

PATIENT
  Sex: Male
  Weight: 87.53 kg

DRUGS (3)
  1. OMEGA-3 MARINE TRIGLYCERIDES [Concomitant]
     Active Substance: FISH OIL
     Indication: BLOOD TRIGLYCERIDES INCREASED
     Dosage: 3600 MG, QD
     Route: 048
     Dates: start: 2008, end: 20130304
  2. JANUVIA [Suspect]
     Active Substance: SITAGLIPTIN PHOSPHATE
     Indication: TYPE 2 DIABETES MELLITUS
     Dosage: 100 MG, QD
     Route: 048
     Dates: start: 20111202, end: 20121217
  3. ASPIRIN. [Concomitant]
     Active Substance: ASPIRIN
     Dosage: 81 MG, QD
     Route: 048
     Dates: start: 2005, end: 20130305

REACTIONS (38)
  - Pancreatitis acute [Unknown]
  - Gastrooesophageal reflux disease [Unknown]
  - Pneumobilia [Unknown]
  - Paraesthesia [Unknown]
  - Abdominal pain [Recovered/Resolved]
  - Pancreatic carcinoma metastatic [Unknown]
  - Pancreaticoduodenectomy [Recovering/Resolving]
  - Pneumoperitoneum [Unknown]
  - Leukaemoid reaction [Recovering/Resolving]
  - Haemoglobin decreased [Recovering/Resolving]
  - Cytopenia [Unknown]
  - Bile duct stent insertion [Unknown]
  - Pyrexia [Unknown]
  - Pancreatic carcinoma recurrent [Unknown]
  - Spleen disorder [Unknown]
  - Toxicity to various agents [Unknown]
  - Spinal osteoarthritis [Unknown]
  - Vertebral osteophyte [Unknown]
  - Prostatomegaly [Unknown]
  - Metastases to lymph nodes [Unknown]
  - Hepatic lesion [Unknown]
  - Splenomegaly [Unknown]
  - Microcytic anaemia [Unknown]
  - Neuropathy peripheral [Unknown]
  - Intervertebral disc space narrowing [Unknown]
  - Constipation [Unknown]
  - Vomiting [Unknown]
  - Neuropathy peripheral [Recovered/Resolved]
  - Glucose urine present [Unknown]
  - Nausea [Unknown]
  - Deafness [Unknown]
  - Cholecystectomy [Unknown]
  - Fatigue [Unknown]
  - Drug ineffective [Unknown]
  - Diarrhoea [Recovered/Resolved]
  - Urine ketone body present [Unknown]
  - Rash erythematous [Unknown]
  - Metastases to liver [Unknown]

NARRATIVE: CASE EVENT DATE: 2012
